FAERS Safety Report 7284919-2 (Version None)
Quarter: 2011Q1

REPORT INFORMATION
  Report Type: 
  Country: None (occurrence: None)
  Receive Date: 20110210
  Receipt Date: 20110203
  Transmission Date: 20110831
  Serious: Yes (Other)
  Sender: FDA-Public Use
  Company Number: GR-BRISTOL-MYERS SQUIBB COMPANY-15531023

PATIENT
  Sex: Female

DRUGS (1)
  1. IRBESARTAN AND HYDROCHLOROTHIAZIDE [Suspect]
     Dosage: 1/2TAB EVERY OTHER DAY,150 UNITS NOT SPECIFIED.
     Dates: start: 20101001

REACTIONS (3)
  - ABDOMINAL PAIN UPPER [None]
  - HYPERSENSITIVITY [None]
  - IRIDOCYCLITIS [None]
